FAERS Safety Report 7563242-2 (Version None)
Quarter: 2011Q2

REPORT INFORMATION
  Report Type: 
  Country: None (occurrence: None)
  Receive Date: 20110622
  Receipt Date: 20110608
  Transmission Date: 20111010
  Serious: Yes (Death, Other)
  Sender: FDA-Public Use
  Company Number: IT-PFIZER INC-2011132192

PATIENT

DRUGS (6)
  1. SUTENT [Suspect]
     Indication: RENAL CANCER
     Dosage: 50 MG, 1X/DAY
     Route: 048
     Dates: start: 20101130, end: 20110517
  2. SINVACOR [Concomitant]
     Dosage: 20 MG, UNK
  3. VASERETIC [Concomitant]
     Dosage: 1 TABLET
  4. NEBIVOLOL HCL [Concomitant]
     Dosage: 1.25 MG, UNK
  5. ALLOPURINOL [Concomitant]
     Dosage: 150
  6. OXYCODONE AND ACETAMINOPHEN [Concomitant]
     Dosage: 10
     Route: 048

REACTIONS (4)
  - THROMBOCYTOPENIA [None]
  - DIARRHOEA [None]
  - DEHYDRATION [None]
  - DEATH [None]
